FAERS Safety Report 11161107 (Version 1)
Quarter: 2015Q2

REPORT INFORMATION
  Report Type: Spontaneous
  Country: US (occurrence: US)
  Receive Date: 20150604
  Receipt Date: 20150604
  Transmission Date: 20150821
  Serious: No
  Sender: FDA-Public Use
  Company Number: US-SA-2014SA080072

PATIENT
  Age: 79 Year

DRUGS (1)
  1. LANTUS [Suspect]
     Active Substance: INSULIN GLARGINE
     Indication: PRODUCT USED FOR UNKNOWN INDICATION
     Dosage: DOSAGE REPORTED AS 50 AND 40 UNITS (AM AND PM)
     Route: 065

REACTIONS (2)
  - Visual impairment [Unknown]
  - Drug administration error [Unknown]
